FAERS Safety Report 23303624 (Version 4)
Quarter: 2025Q3

REPORT INFORMATION
  Report Type: Report from Study
  Country: EU (occurrence: EU)
  Receive Date: 20231215
  Receipt Date: 20250903
  Transmission Date: 20251020
  Serious: Yes (Hospitalization)
  Sender: BAUSCH AND LOMB
  Company Number: EU-SA-SAC20230517000185

PATIENT
  Age: 69 Year
  Sex: Male
  Weight: 62.7 kg

DRUGS (34)
  1. DEXAMETHASONE [Suspect]
     Active Substance: DEXAMETHASONE
     Indication: Plasma cell myeloma refractory
     Dosage: 20 MG, Q15D
     Route: 065
     Dates: start: 20221228, end: 20230118
  2. DEXAMETHASONE [Suspect]
     Active Substance: DEXAMETHASONE
     Indication: Premedication
     Dosage: 20 MG, BIW
     Route: 065
     Dates: start: 20230321, end: 20230405
  3. DEXAMETHASONE [Suspect]
     Active Substance: DEXAMETHASONE
     Dosage: 20 MG, BIW
     Route: 065
     Dates: start: 20230221, end: 20230307
  4. DEXAMETHASONE [Suspect]
     Active Substance: DEXAMETHASONE
     Dosage: 20 MG, BIW
     Route: 065
     Dates: start: 20230125, end: 20230208
  5. DEXAMETHASONE [Suspect]
     Active Substance: DEXAMETHASONE
     Dosage: 20 MG, BIW
     Route: 065
     Dates: start: 20230418, end: 20230502
  6. DEXAMETHASONE [Suspect]
     Active Substance: DEXAMETHASONE
     Dosage: 20 MG, BIW
     Route: 065
     Dates: start: 20230816, end: 20230830
  7. DEXAMETHASONE [Suspect]
     Active Substance: DEXAMETHASONE
     Dosage: 20 MG, BIW
     Route: 065
     Dates: start: 20230613, end: 20230628
  8. CARFILZOMIB [Suspect]
     Active Substance: CARFILZOMIB
     Indication: Plasma cell myeloma refractory
     Dosage: 34 MG, BIW
     Route: 065
     Dates: start: 20221228, end: 20221229
  9. CARFILZOMIB [Suspect]
     Active Substance: CARFILZOMIB
     Dosage: 96 MG, QW
     Route: 065
     Dates: start: 20230104, end: 20230112
  10. CARFILZOMIB [Suspect]
     Active Substance: CARFILZOMIB
     Route: 065
     Dates: start: 20230221, end: 20230308
  11. CARFILZOMIB [Suspect]
     Active Substance: CARFILZOMIB
     Route: 065
     Dates: start: 20230418, end: 20230503
  12. CARFILZOMIB [Suspect]
     Active Substance: CARFILZOMIB
     Route: 065
     Dates: start: 20230321, end: 20230405
  13. CARFILZOMIB [Suspect]
     Active Substance: CARFILZOMIB
     Route: 065
     Dates: start: 20230613, end: 20230627
  14. CARFILZOMIB [Suspect]
     Active Substance: CARFILZOMIB
     Route: 065
     Dates: start: 20230125, end: 20230209
  15. CARFILZOMIB [Suspect]
     Active Substance: CARFILZOMIB
     Dosage: 77 MG, BIW
     Route: 065
     Dates: start: 20230816, end: 20230831
  16. ISATUXIMAB [Suspect]
     Active Substance: ISATUXIMAB
     Indication: Plasma cell myeloma refractory
     Dosage: 620 MG, QW
     Route: 065
     Dates: start: 20221228, end: 20230118
  17. ISATUXIMAB [Suspect]
     Active Substance: ISATUXIMAB
     Dosage: 620 MG, BIW
     Route: 065
     Dates: start: 20230418, end: 20230502
  18. ISATUXIMAB [Suspect]
     Active Substance: ISATUXIMAB
     Dosage: 620 MG, BIW
     Route: 065
     Dates: start: 20230516, end: 20230530
  19. ISATUXIMAB [Suspect]
     Active Substance: ISATUXIMAB
     Dosage: 620 MG, BIW
     Route: 065
     Dates: start: 20230321, end: 20230405
  20. ISATUXIMAB [Suspect]
     Active Substance: ISATUXIMAB
     Dosage: 620 MG, BIW
     Route: 065
     Dates: start: 20230125, end: 20230208
  21. ISATUXIMAB [Suspect]
     Active Substance: ISATUXIMAB
     Dosage: 620 MG, BIW
     Route: 065
     Dates: start: 20230816, end: 20230830
  22. ISATUXIMAB [Suspect]
     Active Substance: ISATUXIMAB
     Dosage: 620 MG, BIW
     Route: 065
     Dates: start: 20230221, end: 20230307
  23. SULFAMETHOXAZOLE\TRIMETHOPRIM [Concomitant]
     Active Substance: SULFAMETHOXAZOLE\TRIMETHOPRIM
     Indication: Prophylaxis
     Route: 065
     Dates: start: 20220915, end: 20230308
  24. LORMETAZEPAM [Concomitant]
     Active Substance: LORMETAZEPAM
     Indication: Prophylaxis
     Route: 065
     Dates: start: 20130515
  25. ZOMETA [Concomitant]
     Active Substance: ZOLEDRONIC ACID
     Indication: Prophylaxis
     Route: 065
     Dates: start: 20230308
  26. PANTOPRAZOLE SODIUM [Concomitant]
     Active Substance: PANTOPRAZOLE SODIUM
     Indication: Prophylaxis
     Route: 065
     Dates: start: 20221223
  27. LORAZEPAM [Concomitant]
     Active Substance: LORAZEPAM
     Indication: Prophylaxis
     Route: 065
     Dates: start: 20220422
  28. DEXCHLORPHENIRAMINE [Concomitant]
     Active Substance: DEXCHLORPHENIRAMINE
     Indication: Premedication
     Route: 065
     Dates: start: 20221228
  29. ACETAMINOPHEN [Concomitant]
     Active Substance: ACETAMINOPHEN
     Indication: Premedication
     Route: 065
     Dates: start: 20221228
  30. ACETAMINOPHEN [Concomitant]
     Active Substance: ACETAMINOPHEN
     Indication: Pain
     Route: 065
     Dates: start: 20221215
  31. DOMPERIDONE [Concomitant]
     Active Substance: DOMPERIDONE
     Indication: Prophylaxis
     Route: 065
     Dates: start: 20230112
  32. ACYCLOVIR [Concomitant]
     Active Substance: ACYCLOVIR
     Indication: Prophylaxis
     Route: 065
     Dates: start: 20231215
  33. EPOETIN ALFA [Concomitant]
     Active Substance: ERYTHROPOIETIN
     Indication: Anaemia prophylaxis
     Route: 065
     Dates: start: 20230221, end: 20230914
  34. DEXAMETHASONE [Concomitant]
     Active Substance: DEXAMETHASONE
     Indication: Premedication
     Dates: start: 20221228

REACTIONS (5)
  - Pneumonia [Recovered/Resolved]
  - Neutropenia [Recovered/Resolved]
  - Thrombocytopenia [Recovering/Resolving]
  - Anaemia [Unknown]
  - Gingivitis [Recovered/Resolved]

NARRATIVE: CASE EVENT DATE: 20230111
